FAERS Safety Report 18812056 (Version 1)
Quarter: 2021Q1

REPORT INFORMATION
  Report Type: Spontaneous
  Country: US (occurrence: US)
  Receive Date: 20210130
  Receipt Date: 20210130
  Transmission Date: 20210419
  Serious: No
  Sender: FDA-Public Use
  Company Number: US-009507513-2101USA005145

PATIENT
  Sex: Female
  Weight: 86.17 kg

DRUGS (1)
  1. DECADRON [Suspect]
     Active Substance: DEXAMETHASONE
     Dosage: UNK
     Route: 048

REACTIONS (1)
  - Drug hypersensitivity [Unknown]
